FAERS Safety Report 7214113-2 (Version None)
Quarter: 2010Q4

REPORT INFORMATION
  Report Type: 
  Country: None (occurrence: None)
  Receive Date: 20101126
  Receipt Date: 20100408
  Transmission Date: 20110411
  Serious: Yes (Hospitalization, Disabling, Other)
  Sender: FDA-Public Use
  Company Number: WAES 1004USA01320

PATIENT
  Age: 61 Year
  Sex: Female
  Weight: 53.5244 kg

DRUGS (4)
  1. FOSAMAX [Suspect]
     Indication: OSTEOPOROSIS
     Dosage: 70 MG/WKY/PO ; 70 MG/WKY/PO
     Route: 048
     Dates: start: 20000601, end: 20071201
  2. FOSAMAX [Suspect]
     Indication: OSTEOPOROSIS
     Dosage: 70 MG/WKY/PO ; 70 MG/WKY/PO
     Route: 048
     Dates: start: 20090101, end: 20100301
  3. PREMARIN [Concomitant]
  4. CALCIUM (UNSPECIFIED) (+) VITAMI [Concomitant]

REACTIONS (2)
  - FEMUR FRACTURE [None]
  - OSTEOARTHRITIS [None]
